FAERS Safety Report 13456865 (Version 1)
Quarter: 2017Q2

REPORT INFORMATION
  Report Type: Spontaneous
  Country: US (occurrence: US)
  Receive Date: 20170418
  Receipt Date: 20170418
  Transmission Date: 20170830
  Serious: No
  Sender: FDA-Public Use
  Company Number: US-SHIRE-US201708796

PATIENT
  Sex: Female

DRUGS (1)
  1. XIIDRA [Suspect]
     Active Substance: LIFITEGRAST
     Indication: DRY EYE
     Dosage: UNK, OTHER (ONCE A DAY AT NIGHT FOR A WEEK AND THEN TWICE A DAY)
     Route: 047

REACTIONS (3)
  - Dysgeusia [Unknown]
  - Lacrimation increased [Unknown]
  - Product use issue [Unknown]
